FAERS Safety Report 11702801 (Version 1)
Quarter: 2015Q4

REPORT INFORMATION
  Report Type: Other
  Country: US (occurrence: US)
  Receive Date: 20151105
  Receipt Date: 20151105
  Transmission Date: 20160304
  Serious: No
  Sender: FDA-Public Use
  Company Number: US-ENDO PHARMACEUTICALS INC.-LOSA20140005

PATIENT
  Age: 82 Year
  Sex: Female
  Weight: 69.46 kg

DRUGS (1)
  1. LOSARTAN POTASSIUM TABLETS 100MG [Suspect]
     Active Substance: LOSARTAN POTASSIUM
     Indication: HYPERTENSION
     Route: 048
     Dates: start: 201403, end: 201407

REACTIONS (4)
  - Drug ineffective [Recovered/Resolved]
  - Head discomfort [Recovered/Resolved]
  - Neck pain [Recovered/Resolved]
  - Tinnitus [Recovered/Resolved]

NARRATIVE: CASE EVENT DATE: 201403
